FAERS Safety Report 13275023 (Version 1)
Quarter: 2017Q1

REPORT INFORMATION
  Report Type: Spontaneous
  Country: PE (occurrence: PE)
  Receive Date: 20170227
  Receipt Date: 20170227
  Transmission Date: 20170428
  Serious: Yes (Hospitalization)
  Sender: FDA-Public Use
  Company Number: PE-DSJP-DSU-2016-116531

PATIENT

DRUGS (3)
  1. OLMETEC ANLO [Suspect]
     Active Substance: AMLODIPINE BESYLATE\OLMESARTAN MEDOXOMIL
     Indication: HYPERTENSION
     Dosage: 1 OR 1/2 OR 1/4 TABLET (40/10MG), QD
     Route: 048
     Dates: end: 201601
  2. OLMETEC ANLO [Suspect]
     Active Substance: AMLODIPINE BESYLATE\OLMESARTAN MEDOXOMIL
     Dosage: 2 (40/10 MG) TABLETS, QD
     Route: 048
     Dates: end: 20160428
  3. VYTORIN [Suspect]
     Active Substance: EZETIMIBE\SIMVASTATIN
     Indication: HYPERTENSION
     Dosage: 10/40 MG, QD
     Route: 048

REACTIONS (7)
  - Aphasia [Not Recovered/Not Resolved]
  - Off label use [Recovered/Resolved]
  - Bone disorder [Not Recovered/Not Resolved]
  - Dysgeusia [Unknown]
  - Cardiac disorder [Not Recovered/Not Resolved]
  - Fatigue [Unknown]
  - Dyspnoea [Unknown]

NARRATIVE: CASE EVENT DATE: 20170120
